FAERS Safety Report 8505121-X (Version None)
Quarter: 2012Q3

REPORT INFORMATION
  Report Type: 
  Country: None (occurrence: None)
  Receive Date: 20120712
  Receipt Date: 20120702
  Transmission Date: 20120928
  Serious: Yes (Other)
  Sender: FDA-Public Use
  Company Number: US-CELGENEUS-163-21880-12032573

PATIENT
  Sex: Male

DRUGS (6)
  1. POTASSIUM CHLORIDE [Concomitant]
     Route: 065
  2. ZOMETA [Concomitant]
     Route: 065
  3. ASCORBIC ACID [Concomitant]
     Route: 065
  4. MSM [Concomitant]
     Route: 065
  5. REVLIMID [Suspect]
     Indication: MULTIPLE MYELOMA
     Dosage: 10 MILLIGRAM
     Route: 048
     Dates: start: 20110716
  6. MULTI-VITAMINS [Concomitant]
     Route: 065

REACTIONS (3)
  - TOOTH DISORDER [None]
  - GINGIVAL PAIN [None]
  - MUSCLE SPASMS [None]
